FAERS Safety Report 8778395 (Version 6)
Quarter: 2012Q4

REPORT INFORMATION
  Report Type: Report from Study
  Country: FR (occurrence: FR)
  Receive Date: 20120912
  Receipt Date: 20121012
  Transmission Date: 20130627
  Serious: Yes (Hospitalization)
  Sender: FDA-Public Use
  Company Number: FR-VERTEX PHARMACEUTICAL INC.-000000000000001395

PATIENT
  Age: 46 Year
  Sex: Female
  Weight: 60 kg

DRUGS (10)
  1. VX-950 [Suspect]
     Indication: HEPATITIS C
     Dosage: 750 mg, qd (3 tablets in am and 2 tablets in pm)
     Route: 048
     Dates: start: 20120511, end: 20120706
  2. VX-950 [Suspect]
     Dosage: 750 mg, bid
     Route: 048
     Dates: start: 20120706, end: 20120706
  3. RIBAVIRIN [Suspect]
     Indication: HEPATITIS C
     Dosage: Dosage Form: Tablet, 2 tabs in and 3 tabs in evening
     Route: 048
     Dates: start: 20120511, end: 20120712
  4. RIBAVIRIN [Suspect]
     Dosage: Dosage Form: Tablet, once in morning
     Route: 048
     Dates: start: 20120713, end: 20120801
  5. PEGINTERFERON ALFA-2A [Suspect]
     Indication: HEPATITIS C
     Dosage: weekly
     Route: 058
     Dates: start: 20120511, end: 20120713
  6. PEGINTERFERON ALFA-2A [Suspect]
     Dosage: UNK UNK, qw
     Route: 058
     Dates: end: 20120801
  7. DOLIPRANE [Concomitant]
     Dosage: 1000 mg, prn
     Route: 048
     Dates: start: 20120511
  8. PROCTOLOG [Concomitant]
     Dosage: 1 DF, qd
     Route: 061
     Dates: start: 20120515
  9. AERIUS [Concomitant]
     Dosage: Dosage Form: Tablet
     Route: 048
     Dates: start: 20120713, end: 20120913
  10. ERYPLAST [Concomitant]
     Dosage: UNK, bid
     Route: 061
     Dates: start: 20120713, end: 20120801

REACTIONS (1)
  - Toxic skin eruption [Recovered/Resolved]
